FAERS Safety Report 16131152 (Version 1)
Quarter: 2019Q1

REPORT INFORMATION
  Report Type: Spontaneous
  Country: FR (occurrence: FR)
  Receive Date: 20190328
  Receipt Date: 20190328
  Transmission Date: 20190418
  Serious: Yes (Death)
  Sender: FDA-Public Use
  Company Number: FR-009507513-1903FRA011016

PATIENT
  Age: 55 Year
  Sex: Male

DRUGS (3)
  1. LORAZEPAM. [Suspect]
     Active Substance: LORAZEPAM
     Indication: POISONING DELIBERATE
     Dosage: 30 MILLIGRAM
     Route: 048
     Dates: start: 20180525
  2. MIRTAZAPINE. [Suspect]
     Active Substance: MIRTAZAPINE
     Indication: POISONING DELIBERATE
     Dosage: 1200 MILLIGRAM
     Route: 048
     Dates: start: 20180525
  3. TERCIAN [Suspect]
     Active Substance: CYAMEMAZINE
     Indication: POISONING DELIBERATE
     Dosage: 1125 MILLIGRAM
     Route: 048
     Dates: start: 20180525

REACTIONS (4)
  - Tachycardia [Fatal]
  - Cardiac arrest [Fatal]
  - Poisoning deliberate [Fatal]
  - Somnolence [Fatal]

NARRATIVE: CASE EVENT DATE: 20180525
